FAERS Safety Report 18436179 (Version 1)
Quarter: 2020Q4

REPORT INFORMATION
  Report Type: Spontaneous
  Country: US (occurrence: US)
  Receive Date: 20201028
  Receipt Date: 20201028
  Transmission Date: 20210114
  Serious: No
  Sender: FDA-Public Use
  Company Number: None

PATIENT
  Age: 76 Year
  Sex: Female
  Weight: 64.62 kg

DRUGS (11)
  1. CALCIUM 600 [Concomitant]
     Active Substance: CALCIUM
  2. EXEMESTANE. [Suspect]
     Active Substance: EXEMESTANE
     Route: 048
     Dates: start: 20200915
  3. VITAMIN D3 [Concomitant]
     Active Substance: CHOLECALCIFEROL
  4. LOPERAMIDE HCL [Concomitant]
     Active Substance: LOPERAMIDE HYDROCHLORIDE
  5. MULTIVITAMIN ADULT [Concomitant]
  6. ASPIRIN 81 [Concomitant]
     Active Substance: ASPIRIN
  7. LOVASTATIN. [Concomitant]
     Active Substance: LOVASTATIN
  8. ATENOLOL. [Concomitant]
     Active Substance: ATENOLOL
  9. GARLIC OIL [Concomitant]
     Active Substance: GARLIC OIL
  10. AMLODIPINE BESYLATE. [Concomitant]
     Active Substance: AMLODIPINE BESYLATE
  11. CBD OIL [Concomitant]
     Active Substance: CANNABIDIOL\HERBALS

REACTIONS (1)
  - Diarrhoea [None]

NARRATIVE: CASE EVENT DATE: 20201028
